FAERS Safety Report 6371293-9 (Version None)
Quarter: 2009Q3

REPORT INFORMATION
  Report Type: 
  Country: None (occurrence: None)
  Receive Date: 20090922
  Receipt Date: 20090922
  Transmission Date: 20100115
  Serious: No
  Sender: FDA-Public Use
  Company Number: None

PATIENT
  Age: 72 Year
  Sex: Male
  Weight: 112.9457 kg

DRUGS (1)
  1. COMPOUNDING HYALURONIDAISE - COMPOUNDED 150M/ML ANAZAO HEALTH [Suspect]
     Indication: LOCAL ANAESTHESIA
     Dosage: 0.2 CC X1 PERIBULBAR EYE BLOCK
     Dates: start: 20090910

REACTIONS (4)
  - CORNEAL OEDEMA [None]
  - EYE PAIN [None]
  - EYE SWELLING [None]
  - POST PROCEDURAL COMPLICATION [None]
